FAERS Safety Report 5886189-6 (Version None)
Quarter: 2008Q3

REPORT INFORMATION
  Report Type: 
  Country: None (occurrence: None)
  Receive Date: 20080917
  Receipt Date: 20080905
  Transmission Date: 20090109
  Serious: Yes (Other)
  Sender: FDA-Public Use
  Company Number: BR-ROCHE-545069

PATIENT
  Age: 29 Year
  Sex: Female
  Weight: 48 kg

DRUGS (6)
  1. ROACUTAN [Suspect]
     Indication: ACNE
     Dosage: STRENGTH: 20 MG
     Route: 048
     Dates: start: 20071001
  2. ROACUTAN [Suspect]
     Dosage: STRENGTH: 10 MG
     Route: 048
     Dates: start: 20080201, end: 20080501
  3. ROACUTAN [Suspect]
     Dosage: STREGTH: 10 MG
     Route: 048
     Dates: end: 20080101
  4. ROACUTAN [Suspect]
     Dosage: STRENGTH: 20 MG
     Route: 048
     Dates: start: 20080101, end: 20080201
  5. 1 CONCOMITANT DRUG [Concomitant]
     Indication: CONTRACEPTION
  6. PREDNISONE TAB [Concomitant]

REACTIONS (5)
  - DRY MOUTH [None]
  - DRY SKIN [None]
  - ECZEMA [None]
  - EYELID OEDEMA [None]
  - FACE OEDEMA [None]
